FAERS Safety Report 18920047 (Version 2)
Quarter: 2021Q1

REPORT INFORMATION
  Report Type: Spontaneous
  Country: US (occurrence: US)
  Receive Date: 20210222
  Receipt Date: 20210310
  Transmission Date: 20210420
  Serious: No
  Sender: FDA-Public Use
  Company Number: US-TEVA-2021-US-1879910

PATIENT

DRUGS (3)
  1. HYDRALAZINE TEVA [Suspect]
     Active Substance: HYDRALAZINE HYDROCHLORIDE
     Indication: BLOOD PRESSURE MEASUREMENT
     Route: 065
  2. HYDRALAZINE TEVA [Suspect]
     Active Substance: HYDRALAZINE HYDROCHLORIDE
     Dosage: TAKE TWO 10MG PILLS UPON WAKING, ONE AT LUNCH TIME AND TWO MORE AT DINNER TIME
     Route: 065
  3. METOPROLOL. [Concomitant]
     Active Substance: METOPROLOL
     Indication: BLOOD PRESSURE MEASUREMENT

REACTIONS (7)
  - Myalgia [Unknown]
  - Therapeutic product effect decreased [Unknown]
  - Pain of skin [Unknown]
  - Headache [Unknown]
  - Burning sensation [Unknown]
  - Nasal congestion [Unknown]
  - Arthralgia [Unknown]
